FAERS Safety Report 26202876 (Version 1)
Quarter: 2025Q4

REPORT INFORMATION
  Report Type: Spontaneous
  Country: JP (occurrence: JP)
  Receive Date: 20251226
  Receipt Date: 20251226
  Transmission Date: 20260117
  Serious: Yes (Hospitalization, Other)
  Sender: NOVARTIS
  Company Number: JP-002147023-NVSJ2025JP011550

PATIENT
  Age: 70 Year
  Sex: Male
  Weight: 65.7 kg

DRUGS (7)
  1. TAFINLAR [Suspect]
     Active Substance: DABRAFENIB MESYLATE
     Indication: BRAF V600E mutation positive
     Dosage: 150 MG, BID
     Route: 048
     Dates: start: 20251113, end: 20251126
  2. TAFINLAR [Suspect]
     Active Substance: DABRAFENIB MESYLATE
     Indication: Gallbladder cancer
  3. MEKINIST [Suspect]
     Active Substance: TRAMETINIB DIMETHYL SULFOXIDE
     Indication: BRAF V600E mutation positive
     Dosage: 2 MG, QD
     Route: 048
     Dates: start: 20251113, end: 20251126
  4. MEKINIST [Suspect]
     Active Substance: TRAMETINIB DIMETHYL SULFOXIDE
     Indication: Gallbladder cancer
  5. URSO [Concomitant]
     Active Substance: URSODIOL
     Indication: Hepatic function abnormal
     Dosage: 100 UNK, TID
     Route: 048
     Dates: start: 20250731
  6. ZINC [Concomitant]
     Active Substance: ZINC
     Indication: Blood zinc decreased
     Dosage: 25 UNK, BID
     Route: 048
     Dates: start: 20251029
  7. MAGNESIUM OXIDE [Concomitant]
     Active Substance: MAGNESIUM OXIDE
     Indication: Constipation
     Dosage: 660 UNK, PRN
     Route: 048

REACTIONS (8)
  - Pyrexia [Recovered/Resolved]
  - Loss of consciousness [Unknown]
  - Chills [Unknown]
  - Dehydration [Unknown]
  - Interstitial lung disease [Recovered/Resolved]
  - Concomitant disease progression [Recovered/Resolved]
  - Haemoglobin decreased [Unknown]
  - KL-6 increased [Unknown]

NARRATIVE: CASE EVENT DATE: 20251126
